FAERS Safety Report 15304650 (Version 1)
Quarter: 2018Q3

REPORT INFORMATION
  Report Type: Spontaneous
  Country: GB (occurrence: GB)
  Receive Date: 20180821
  Receipt Date: 20180821
  Transmission Date: 20181010
  Serious: Yes (Other)
  Sender: FDA-Public Use
  Company Number: GB-009507513-2011SP002818

PATIENT
  Age: 21 Year
  Sex: Female

DRUGS (2)
  1. PROCHLORPERAZINE. [Concomitant]
     Active Substance: PROCHLORPERAZINE
     Indication: GASTROENTERITIS
     Dosage: SHORT COURSE ; AS NECESSARY
     Route: 002
     Dates: start: 201011
  2. IMPLANON [Suspect]
     Active Substance: ETONOGESTREL
     Indication: PRODUCT USED FOR UNKNOWN INDICATION
     Dosage: 1 DF, UNK
     Route: 058
     Dates: start: 20100325

REACTIONS (2)
  - Abortion spontaneous [Recovering/Resolving]
  - Pregnancy with implant contraceptive [Unknown]

NARRATIVE: CASE EVENT DATE: 20101223
